FAERS Safety Report 6721848-4 (Version None)
Quarter: 2010Q2

REPORT INFORMATION
  Report Type: 
  Country: None (occurrence: None)
  Receive Date: 20100512
  Receipt Date: 20100428
  Transmission Date: 20101027
  Serious: Yes (Other)
  Sender: FDA-Public Use
  Company Number: PHEH2007US11290

PATIENT
  Sex: Male
  Weight: 77.098 kg

DRUGS (16)
  1. AREDIA [Suspect]
     Indication: MULTIPLE MYELOMA
  2. ZOMETA [Suspect]
  3. MELPHALAN HYDROCHLORIDE [Concomitant]
  4. VINCRISTINE + ADRIAMYCIN + DEXAMETHASONE [Concomitant]
  5. PENICILLIN ^GRUNENTHAL^ [Concomitant]
  6. ACYCLOVIR [Concomitant]
     Dosage: 400 MG, BID
  7. PERIDEX [Concomitant]
  8. CIPROFLOXACIN [Concomitant]
  9. CLINDAMYCIN [Concomitant]
     Dosage: 210 MG, UNK
  10. LIPITOR [Concomitant]
     Dosage: 10 MG / QD
     Route: 048
  11. ZOLOFT [Concomitant]
     Dosage: 100 MG / DAILY AM
     Route: 048
  12. ASPIRIN [Concomitant]
     Dosage: 81 MG / OD
     Route: 048
  13. ALPRAZOLAM [Concomitant]
     Dosage: 0.25 MG / Q6HRS PRN
     Route: 048
  14. LISINOPRIL [Concomitant]
     Dosage: 10 MG / DAILY
     Route: 048
  15. PREVACID [Concomitant]
     Dosage: 30 MG / PRN
     Route: 048
  16. SERTRALINE HYDROCHLORIDE [Concomitant]
     Dosage: 100 MG / QD
     Route: 048

REACTIONS (28)
  - ANHEDONIA [None]
  - ANXIETY [None]
  - BONE DISORDER [None]
  - CARDIAC MURMUR [None]
  - DEFORMITY [None]
  - DEPRESSION [None]
  - DIABETES MELLITUS [None]
  - DISCOMFORT [None]
  - EMOTIONAL DISTRESS [None]
  - EYELID DISORDER [None]
  - HAEMATURIA [None]
  - HYPERCHOLESTEROLAEMIA [None]
  - HYPERLIPIDAEMIA [None]
  - HYPERTENSION [None]
  - HYPOPHAGIA [None]
  - LEFT VENTRICULAR DYSFUNCTION [None]
  - LIFE EXPECTANCY SHORTENED [None]
  - METAPLASIA [None]
  - MICROGRAPHIC SKIN SURGERY [None]
  - MOUTH ULCERATION [None]
  - OSTEONECROSIS OF JAW [None]
  - OSTEOPENIA [None]
  - PAIN [None]
  - REFLUX OESOPHAGITIS [None]
  - RENAL CYST [None]
  - SINUSITIS [None]
  - TOOTH EXTRACTION [None]
  - UNEVALUABLE EVENT [None]
